FAERS Safety Report 11192337 (Version 2)
Quarter: 2015Q3

REPORT INFORMATION
  Report Type: Spontaneous
  Country: PT (occurrence: PT)
  Receive Date: 20150616
  Receipt Date: 20150921
  Transmission Date: 20151125
  Serious: Yes (Other)
  Sender: FDA-Public Use
  Company Number: PT-ACTAVIS-2015-11732

PATIENT
  Age: 32 Year
  Sex: Female
  Weight: 69 kg

DRUGS (6)
  1. PERJETA [Concomitant]
     Active Substance: PERTUZUMAB
     Indication: BREAST CANCER
     Dosage: 420 MG, 1/ THREE WEEKS
     Route: 042
     Dates: start: 20150520, end: 20150520
  2. HERCEPTIN [Concomitant]
     Active Substance: TRASTUZUMAB
     Indication: BREAST CANCER
     Dosage: 410 MG, 1/ THREE WEEKS
     Route: 042
     Dates: start: 20150520, end: 20150520
  3. DOCETAXEL ACTAVIS [Suspect]
     Active Substance: DOCETAXEL
     Indication: BREAST CANCER
     Dosage: 140 MG, 1/ THREE WEEKS, (DOSING SCHEDULE: PERTUZUMAB + TRASTUZUMAB + DOCETAXEL.)
     Route: 042
     Dates: start: 20150520, end: 20150520
  4. ONDANSETROM                        /00955301/ [Concomitant]
     Indication: ALLERGY PROPHYLAXIS
     Dosage: 8 MG, DAILY (AS PART OF PRE-MEDICATION REGIMEN)
     Route: 042
     Dates: start: 20150520, end: 20150520
  5. PREDNISOLONA                       /00016201/ [Concomitant]
     Indication: ALLERGY PROPHYLAXIS
     Dosage: 20 MG, 3/2 DAYS (AS PART OF PRE-MEDICATION REGIMEN)
     Route: 048
     Dates: start: 20150519, end: 20150520
  6. DEXAMETASONA                       /00016001/ [Concomitant]
     Indication: ALLERGY PROPHYLAXIS
     Dosage: 20 MG, DAILY (AS PART OF PRE-MEDICATION REGIMEN)
     Route: 042
     Dates: start: 20150520, end: 20150520

REACTIONS (2)
  - Glossodynia [Unknown]
  - Oral discomfort [Unknown]

NARRATIVE: CASE EVENT DATE: 20150520
